FAERS Safety Report 9651235 (Version 1)
Quarter: 2013Q4

REPORT INFORMATION
  Report Type: Spontaneous
  Country: US (occurrence: None)
  Receive Date: 20131028
  Receipt Date: 20131028
  Transmission Date: 20140711
  Serious: No
  Sender: FDA-Public Use
  Company Number: None

PATIENT
  Age: 79 Year
  Sex: Male

DRUGS (1)
  1. SUTENT [Suspect]
     Dosage: 50MG, QD X 4WKS, 2 WKS OFF, PO
     Route: 048
     Dates: start: 20130911

REACTIONS (1)
  - Gingival bleeding [None]
